FAERS Safety Report 16728918 (Version 1)
Quarter: 2019Q3

REPORT INFORMATION
  Report Type: Spontaneous
  Country: JP (occurrence: JP)
  Receive Date: 20190822
  Receipt Date: 20190822
  Transmission Date: 20191005
  Serious: Yes (Hospitalization, Other)
  Sender: FDA-Public Use
  Company Number: JP-SA-2019SA226279

PATIENT
  Age: 14 Year
  Sex: Female
  Weight: 49.8 kg

DRUGS (1)
  1. DREWELL [Suspect]
     Active Substance: DIPHENHYDRAMINE HYDROCHLORIDE
     Indication: INTENTIONAL OVERDOSE
     Dosage: UNK
     Route: 048

REACTIONS (15)
  - Ventricular extrasystoles [Recovering/Resolving]
  - Arrhythmia [Recovering/Resolving]
  - Altered state of consciousness [Recovering/Resolving]
  - Ventricular fibrillation [Recovering/Resolving]
  - Generalised tonic-clonic seizure [Recovering/Resolving]
  - Dysmenorrhoea [Recovering/Resolving]
  - Electrocardiogram QT prolonged [Recovering/Resolving]
  - Cardio-respiratory arrest [Recovering/Resolving]
  - Intentional overdose [Recovering/Resolving]
  - Toxicity to various agents [Recovering/Resolving]
  - Peripheral coldness [Recovering/Resolving]
  - Pneumonia aspiration [Recovering/Resolving]
  - Fall [Recovering/Resolving]
  - Pulseless electrical activity [Recovering/Resolving]
  - Retrograde amnesia [Recovering/Resolving]
